FAERS Safety Report 4799716-7 (Version None)
Quarter: 2005Q4

REPORT INFORMATION
  Report Type: 
  Country: None (occurrence: None)
  Receive Date: 20051006
  Receipt Date: 20051006
  Transmission Date: 20060501
  Serious: Yes (Hospitalization)
  Sender: FDA-Public Use
  Company Number: None

PATIENT
  Age: 60 Year
  Sex: Male
  Weight: 130 kg

DRUGS (3)
  1. DILTIAZEM [Suspect]
     Indication: ATRIAL FIBRILLATION
     Dosage: 80 MG PO BID
  2. PROPAFENONE HCL [Suspect]
     Indication: ATRIAL FIBRILLATION
     Dosage: 300MG PO Q 8 H
     Route: 048
     Dates: end: 20041020
  3. METOPROLOL [Suspect]
     Indication: HYPERTENSION
     Dosage: 25MG BID
     Dates: start: 20041017, end: 20041022

REACTIONS (3)
  - ATRIAL FIBRILLATION [None]
  - CONDITION AGGRAVATED [None]
  - HEART RATE DECREASED [None]
